FAERS Safety Report 25978709 (Version 1)
Quarter: 2025Q4

REPORT INFORMATION
  Report Type: Report from Study
  Country: US (occurrence: US)
  Receive Date: 20251030
  Receipt Date: 20251030
  Transmission Date: 20260119
  Serious: Yes (Hospitalization, Other)
  Sender: GILEAD
  Company Number: US-GILEAD-2025-0734500

PATIENT
  Sex: Female

DRUGS (2)
  1. AMBRISENTAN [Suspect]
     Active Substance: AMBRISENTAN
     Indication: Pulmonary arterial hypertension
     Dosage: 10 MG, QD
     Route: 048
     Dates: start: 20250408
  2. UPTRAVI [Concomitant]
     Active Substance: SELEXIPAG
     Dosage: 1 DOSAGE FORM [800]

REACTIONS (4)
  - Haemorrhage [Unknown]
  - Atrial fibrillation [Unknown]
  - Diarrhoea [Unknown]
  - Weight decreased [Unknown]
